FAERS Safety Report 16331733 (Version 1)
Quarter: 2019Q2

REPORT INFORMATION
  Report Type: Spontaneous
  Country: US (occurrence: US)
  Receive Date: 20190518
  Receipt Date: 20190518
  Transmission Date: 20190711
  Serious: Yes (Life-Threatening, Hospitalization, Disabling)
  Sender: FDA-Public Use
  Company Number: None

PATIENT
  Age: 42 Year
  Sex: Female
  Weight: 50 kg

DRUGS (7)
  1. LORAZEPAM. [Suspect]
     Active Substance: LORAZEPAM
     Indication: ANXIETY
     Route: 048
  2. ESCITALOPRAM [Suspect]
     Active Substance: ESCITALOPRAM OXALATE
  3. OLANZAPINE. [Suspect]
     Active Substance: OLANZAPINE
  4. RISPERIDONE. [Suspect]
     Active Substance: RISPERIDONE
  5. ALPRAZOLAM. [Suspect]
     Active Substance: ALPRAZOLAM
  6. ARIPIPRAZOLE. [Suspect]
     Active Substance: ARIPIPRAZOLE
  7. ABILIFY [Suspect]
     Active Substance: ARIPIPRAZOLE

REACTIONS (4)
  - Fear [None]
  - Akathisia [None]
  - Malaise [None]
  - Anxiety [None]

NARRATIVE: CASE EVENT DATE: 20150729
